FAERS Safety Report 22280028 (Version 1)
Quarter: 2023Q2

REPORT INFORMATION
  Report Type: Report from Study
  Country: IT (occurrence: IT)
  Receive Date: 20230503
  Receipt Date: 20230503
  Transmission Date: 20230722
  Serious: Yes (Other)
  Sender: FDA-Public Use
  Company Number: None

PATIENT
  Age: 73 Year
  Sex: Male
  Weight: 53 kg

DRUGS (7)
  1. OXALIPLATIN [Suspect]
     Active Substance: OXALIPLATIN
     Indication: Oesophageal carcinoma
     Route: 065
     Dates: start: 20221207, end: 20221207
  2. FLUOROURACIL [Interacting]
     Active Substance: FLUOROURACIL
     Indication: Oesophageal carcinoma
     Dates: start: 20221207, end: 20221208
  3. FLUOROURACIL [Interacting]
     Active Substance: FLUOROURACIL
     Indication: Oesophageal carcinoma
     Route: 065
     Dates: start: 20221207, end: 20221207
  4. LEVOLEUCOVORIN CALCIUM [Interacting]
     Active Substance: LEVOLEUCOVORIN CALCIUM
     Indication: Oesophageal carcinoma
     Route: 065
     Dates: start: 20221207, end: 20221207
  5. PREDNISONE [Concomitant]
     Active Substance: PREDNISONE
     Indication: Product used for unknown indication
     Dosage: 25 MILLIGRAM DAILY; THE PATIENT TAKES 25 MG OF PREDNISONE ONCE A DAY
     Route: 065
  6. ALPRAZOLAM [Concomitant]
     Active Substance: ALPRAZOLAM
     Indication: Product used for unknown indication
     Dosage: 10 GTT DAILY; THE PATIENT TAKES ALPRAZOLAM DROPS 0.75 MG/ML 20 ML, 10 DROPS 1 TIME PER DAY.
     Route: 065
  7. PANTOPRAZOLE SODIUM [Concomitant]
     Active Substance: PANTOPRAZOLE SODIUM
     Indication: Product used for unknown indication
     Dosage: 40 MILLIGRAM DAILY; THE PATIENT TAKES 40 MG OF PANTOPRAZOLE ONCE A DAY.
     Route: 065

REACTIONS (7)
  - Neutropenia [Recovered/Resolved]
  - Decreased appetite [Not Recovered/Not Resolved]
  - Drug interaction [Recovered/Resolved]
  - Nausea [Recovered/Resolved]
  - Cough [Recovering/Resolving]
  - Constipation [Recovering/Resolving]
  - Asthenia [Not Recovered/Not Resolved]

NARRATIVE: CASE EVENT DATE: 20221207
